FAERS Safety Report 5589417-X (Version None)
Quarter: 2008Q1

REPORT INFORMATION
  Report Type: 
  Country: None (occurrence: None)
  Receive Date: 20080114
  Receipt Date: 20080108
  Transmission Date: 20080703
  Serious: Yes (Life-Threatening, Hospitalization, Disabling, Other)
  Sender: FDA-Public Use
  Company Number: GB-BRISTOL-MYERS SQUIBB COMPANY-14038566

PATIENT
  Age: 73 Year
  Sex: Male

DRUGS (7)
  1. CYCLOPHOSPHAMIDE [Suspect]
     Dosage: PREVIOUS COURSES : 03OCT07-07OCT07, 20NOV07-24NOV07
     Route: 048
     Dates: start: 20071219, end: 20071223
  2. ASPIRIN [Suspect]
     Route: 048
     Dates: start: 20030507
  3. LISINOPRIL [Suspect]
     Route: 048
     Dates: start: 20070103
  4. ATENOLOL [Suspect]
     Route: 048
     Dates: start: 20070103
  5. FLUDARA [Suspect]
     Dosage: PREVIOUS COURSES : 03OCT07-07OCT07, 20NOV07-24NOV07
     Route: 048
     Dates: start: 20071219, end: 20071223
  6. AMLODIPINE [Suspect]
     Route: 048
     Dates: start: 20071203
  7. ATORVASTATIN [Suspect]
     Route: 048
     Dates: start: 20070125

REACTIONS (3)
  - EPISTAXIS [None]
  - PETECHIAE [None]
  - PLATELET COUNT DECREASED [None]
